FAERS Safety Report 15218485 (Version 3)
Quarter: 2018Q3

REPORT INFORMATION
  Report Type: Spontaneous
  Country: PT (occurrence: PT)
  Receive Date: 20180730
  Receipt Date: 20180831
  Transmission Date: 20181010
  Serious: Yes (Hospitalization, Other)
  Sender: FDA-Public Use
  Company Number: PT-009507513-1807PRT010370

PATIENT
  Age: 26 Year
  Sex: Male

DRUGS (3)
  1. BETAMETHASONE DIPROPIONATE (+) BETAMETHASONE SODIUM PHOSPHATE [Suspect]
     Active Substance: BETAMETHASONE DIPROPIONATE\BETAMETHASONE SODIUM PHOSPHATE
     Indication: RASH GENERALISED
     Dosage: UNK
     Route: 042
  2. BETAMETHASONE DIPROPIONATE (+) BETAMETHASONE SODIUM PHOSPHATE [Suspect]
     Active Substance: BETAMETHASONE DIPROPIONATE\BETAMETHASONE SODIUM PHOSPHATE
     Indication: HYPERSENSITIVITY
  3. IODINE. [Suspect]
     Active Substance: IODINE
     Indication: ROUTINE HEALTH MAINTENANCE
     Dosage: 150 MICROGRAM, QD

REACTIONS (1)
  - Thyrotoxic periodic paralysis [Recovered/Resolved]
